FAERS Safety Report 5739980-0 (Version None)
Quarter: 2008Q2

REPORT INFORMATION
  Report Type: 
  Country: None (occurrence: None)
  Receive Date: 20080516
  Receipt Date: 20080506
  Transmission Date: 20081010
  Serious: Yes (Other)
  Sender: FDA-Public Use
  Company Number: US-AMGEN-STX277945

PATIENT
  Sex: Male

DRUGS (2)
  1. ENBREL [Suspect]
     Indication: PSORIATIC ARTHROPATHY
     Route: 058
     Dates: start: 20051114
  2. ENBREL [Suspect]
     Indication: PSORIASIS

REACTIONS (6)
  - CALCINOSIS [None]
  - DRUG INEFFECTIVE [None]
  - HEPATIC ENZYME INCREASED [None]
  - PERIARTHRITIS [None]
  - PSORIASIS [None]
  - VERTEBROBASILAR INSUFFICIENCY [None]
